FAERS Safety Report 25910995 (Version 2)
Quarter: 2025Q4

REPORT INFORMATION
  Report Type: Spontaneous
  Country: CA (occurrence: CA)
  Receive Date: 20251013
  Receipt Date: 20251014
  Transmission Date: 20260117
  Serious: Yes (Hospitalization)
  Sender: CHEPLAPHARM
  Company Number: CA-ROCHE-10000400292

PATIENT
  Age: 52 Year
  Sex: Female

DRUGS (24)
  1. CLONAZEPAM [Suspect]
     Active Substance: CLONAZEPAM
     Indication: Hypomania
     Dosage: DAILY DOSE: 3 MILLIGRAM
     Route: 048
  2. OLANZAPINE [Suspect]
     Active Substance: OLANZAPINE
     Indication: Product used for unknown indication
     Dosage: DAILY DOSE: 12.5 MILLIGRAM
  3. QUETIAPINE [Suspect]
     Active Substance: QUETIAPINE
     Indication: Psychotic disorder
     Dosage: DAILY DOSE: 500 MILLIGRAM
  4. DIAZEPAM [Suspect]
     Active Substance: DIAZEPAM
     Indication: HIV infection
     Dosage: DAILY DOSE: 1500 MILLIGRAM
     Route: 048
  5. ACETAMINOPHEN [Suspect]
     Active Substance: ACETAMINOPHEN
     Indication: Product used for unknown indication
     Route: 048
  6. RISPERIDONE [Suspect]
     Active Substance: RISPERIDONE
  7. APTIVUS [Suspect]
     Active Substance: TIPRANAVIR
     Indication: Product used for unknown indication
  8. DEPAKOTE [Suspect]
     Active Substance: DIVALPROEX SODIUM
  9. PROCYCLIDINE HYDROCHLORIDE [Suspect]
     Active Substance: PROCYCLIDINE HYDROCHLORIDE
  10. TEGRETOL [Suspect]
     Active Substance: CARBAMAZEPINE
  11. TRAZODONE [Suspect]
     Active Substance: TRAZODONE HYDROCHLORIDE
  12. ABACAVIR SULFATE [Concomitant]
     Active Substance: ABACAVIR SULFATE
     Indication: Product used for unknown indication
  13. LAMIVUDINE [Concomitant]
     Active Substance: LAMIVUDINE
     Indication: Product used for unknown indication
  14. ATOVAQUONE [Concomitant]
     Active Substance: ATOVAQUONE
  15. ATOVAQUONE\PROGUANIL [Concomitant]
     Active Substance: ATOVAQUONE\PROGUANIL
  16. BISACODYL [Concomitant]
     Active Substance: BISACODYL
  17. CALCIUM CARBONATE [Concomitant]
     Active Substance: CALCIUM CARBONATE
  18. CHLORAL HYDRATE [Concomitant]
     Active Substance: CHLORAL HYDRATE
  19. LITHIUM [Concomitant]
     Active Substance: LITHIUM
  20. LOPINAVIR [Concomitant]
     Active Substance: LOPINAVIR
  21. NYSTATIN [Concomitant]
     Active Substance: NYSTATIN
  22. PHENYLEPHRINE HYDROCHLORIDE [Concomitant]
     Active Substance: PHENYLEPHRINE HYDROCHLORIDE
  23. SERTRALINE HYDROCHLORIDE [Concomitant]
     Active Substance: SERTRALINE HYDROCHLORIDE
  24. ENFUVIRTIDE [Concomitant]
     Active Substance: ENFUVIRTIDE

REACTIONS (8)
  - Cholelithiasis [Unknown]
  - Hypomania [Unknown]
  - Nausea [Unknown]
  - Off label use [Unknown]
  - Pain in extremity [Unknown]
  - Pneumonia [Unknown]
  - Schizophrenia [Unknown]
  - Vomiting [Unknown]
